FAERS Safety Report 13184524 (Version 3)
Quarter: 2017Q1

REPORT INFORMATION
  Report Type: Spontaneous
  Country: JP (occurrence: JP)
  Receive Date: 20170203
  Receipt Date: 20170228
  Transmission Date: 20170428
  Serious: Yes (Other)
  Sender: FDA-Public Use
  Company Number: JP-ASTRAZENECA-2017SE11318

PATIENT
  Age: 19752 Day
  Sex: Male
  Weight: 73 kg

DRUGS (1)
  1. CRESTOR [Suspect]
     Active Substance: ROSUVASTATIN CALCIUM
     Indication: HYPERCHOLESTEROLAEMIA
     Route: 048
     Dates: start: 20161229, end: 20170121

REACTIONS (5)
  - Rash [Recovering/Resolving]
  - Anaphylactic shock [Recovering/Resolving]
  - Epistaxis [Recovering/Resolving]
  - Drug dose omission [Unknown]
  - Auricular haematoma [Recovering/Resolving]

NARRATIVE: CASE EVENT DATE: 20170101
